FAERS Safety Report 17942839 (Version 1)
Quarter: 2020Q2

REPORT INFORMATION
  Report Type: Spontaneous
  Country: CN (occurrence: CN)
  Receive Date: 20200625
  Receipt Date: 20200625
  Transmission Date: 20200714
  Serious: Yes (Hospitalization)
  Sender: FDA-Public Use
  Company Number: CN-ASTRAZENECA-2020SE79177

PATIENT
  Age: 24843 Day
  Sex: Male
  Weight: 72 kg

DRUGS (4)
  1. BRILINTA [Suspect]
     Active Substance: TICAGRELOR
     Indication: CORONARY ARTERY DISEASE
     Route: 048
     Dates: start: 20200603
  2. BAYASPIRIN [Suspect]
     Active Substance: ASPIRIN
     Indication: GASTROOESOPHAGEAL REFLUX DISEASE
     Route: 048
     Dates: start: 20200603, end: 20200610
  3. BRILINTA [Suspect]
     Active Substance: TICAGRELOR
     Indication: GASTROOESOPHAGEAL REFLUX DISEASE
     Route: 048
     Dates: start: 20200603
  4. BAYASPIRIN [Suspect]
     Active Substance: ASPIRIN
     Indication: CORONARY ARTERY DISEASE
     Route: 048
     Dates: start: 20200603, end: 20200610

REACTIONS (6)
  - Chest pain [Unknown]
  - Melaena [Recovered/Resolved]
  - Abdominal discomfort [Unknown]
  - Abnormal loss of weight [Unknown]
  - Hiccups [Unknown]
  - Regurgitation [Unknown]

NARRATIVE: CASE EVENT DATE: 20200603
